FAERS Safety Report 8318774-6 (Version None)
Quarter: 2012Q2

REPORT INFORMATION
  Report Type: 
  Country: None (occurrence: None)
  Receive Date: 20120427
  Receipt Date: 20120418
  Transmission Date: 20120825
  Serious: Yes (Other)
  Sender: FDA-Public Use
  Company Number: CA-JNJFOC-20120408295

PATIENT
  Sex: Female
  Weight: 74 kg

DRUGS (1)
  1. REMICADE [Suspect]
     Indication: CROHN'S DISEASE
     Route: 042
     Dates: start: 20050413

REACTIONS (5)
  - LARYNGOSPASM [None]
  - ATRIAL FIBRILLATION [None]
  - LARYNX IRRITATION [None]
  - CROHN'S DISEASE [None]
  - LARYNGEAL OEDEMA [None]
